FAERS Safety Report 12574699 (Version 1)
Quarter: 2016Q3

REPORT INFORMATION
  Report Type: Spontaneous
  Country: ES (occurrence: ES)
  Receive Date: 20160720
  Receipt Date: 20160720
  Transmission Date: 20161109
  Serious: Yes (Other)
  Sender: FDA-Public Use
  Company Number: ES-PFIZER INC-2016341152

PATIENT
  Sex: Female

DRUGS (9)
  1. LEVOTHYROXINE. [Concomitant]
     Active Substance: LEVOTHYROXINE
     Dosage: 150 UG, UNK
  2. TROMALYT [Concomitant]
     Active Substance: ASPIRIN
     Dosage: 150 MG, UNK
  3. TARDYFERON [Concomitant]
     Active Substance: FERROUS SULFATE
  4. CANDESARTAN CILEXETIL-HYDROCHLOROTHIAZIDE [Concomitant]
     Active Substance: CANDESARTAN CILEXETIL\HYDROCHLOROTHIAZIDE
  5. HIGROTONA [Concomitant]
     Active Substance: CHLORTHALIDONE
     Dosage: 50 MG, UNK
  6. PANTOPRAZOLE [Concomitant]
     Active Substance: PANTOPRAZOLE SODIUM
  7. SUPRADYN /07499601/ [Concomitant]
     Active Substance: ASCORBIC ACID\MINERALS\VITAMINS
  8. AMLODIPINE BESILATE [Suspect]
     Active Substance: AMLODIPINE BESYLATE
  9. RANEXA [Concomitant]
     Active Substance: RANOLAZINE
     Dosage: 500 MG, UNK

REACTIONS (3)
  - Amnesia [Unknown]
  - Headache [Unknown]
  - Cerebrovascular accident [Unknown]
